FAERS Safety Report 6810028-X (Version None)
Quarter: 2010Q2

REPORT INFORMATION
  Report Type: 
  Country: None (occurrence: None)
  Receive Date: 20100630
  Receipt Date: 20100623
  Transmission Date: 20101027
  Serious: Yes (Hospitalization)
  Sender: FDA-Public Use
  Company Number: B0662594A

PATIENT
  Sex: Male

DRUGS (1)
  1. ALKERAN [Suspect]
     Indication: BONE MARROW TRANSPLANT
     Route: 065

REACTIONS (4)
  - LUNG DISORDER [None]
  - PANCYTOPENIA [None]
  - RENAL TUBULAR DISORDER [None]
  - RESPIRATORY DISTRESS [None]
